FAERS Safety Report 25939556 (Version 1)
Quarter: 2025Q4

REPORT INFORMATION
  Report Type: Spontaneous
  Country: US (occurrence: US)
  Receive Date: 20251020
  Receipt Date: 20251020
  Transmission Date: 20260118
  Serious: Yes (Other)
  Sender: ALVOGEN
  Company Number: None

PATIENT

DRUGS (2)
  1. LEVOTHYROXINE [Suspect]
     Active Substance: LEVOTHYROXINE
     Indication: Hypothyroidism
     Dosage: 25 MCG, FIRST BATCH
  2. LEVOTHYROXINE [Suspect]
     Active Substance: LEVOTHYROXINE
     Indication: Hypothyroidism
     Dosage: 25 MCG, SECOND BATCH

REACTIONS (3)
  - Hypothyroidism [Unknown]
  - Condition aggravated [Unknown]
  - Blood thyroid stimulating hormone decreased [Unknown]
